FAERS Safety Report 26216103 (Version 1)
Quarter: 2025Q4

REPORT INFORMATION
  Report Type: Spontaneous
  Country: US (occurrence: US)
  Receive Date: 20251231
  Receipt Date: 20251231
  Transmission Date: 20260117
  Serious: No
  Sender: GC Biopharma
  Company Number: US-GC BIOPHARMA-US-2025-GCBP-00052

PATIENT
  Sex: Female
  Weight: 86.8 kg

DRUGS (4)
  1. ALYGLO [Suspect]
     Active Substance: HUMAN IMMUNOGLOBULIN G-STWK
     Indication: Immunodeficiency common variable
     Dosage: 20 GRAM
     Route: 042
     Dates: start: 20251120, end: 20251120
  2. ALYGLO [Suspect]
     Active Substance: HUMAN IMMUNOGLOBULIN G-STWK
     Dosage: 10 GRAM
     Route: 042
     Dates: start: 20251120, end: 20251120
  3. ALYGLO [Suspect]
     Active Substance: HUMAN IMMUNOGLOBULIN G-STWK
     Dosage: 5 GRAM
     Route: 042
     Dates: start: 20251120, end: 20251120
  4. ALYGLO [Suspect]
     Active Substance: HUMAN IMMUNOGLOBULIN G-STWK
     Dosage: UNK
     Route: 065
     Dates: start: 20250410, end: 20250410

REACTIONS (3)
  - Eye swelling [Recovered/Resolved]
  - Paraesthesia oral [Recovered/Resolved]
  - Urticaria [Recovered/Resolved]
